FAERS Safety Report 7299524-1 (Version None)
Quarter: 2011Q1

REPORT INFORMATION
  Report Type: 
  Country: None (occurrence: None)
  Receive Date: 20110217
  Receipt Date: 20110204
  Transmission Date: 20110831
  Serious: Yes (Hospitalization)
  Sender: FDA-Public Use
  Company Number: FR-ELI_LILLY_AND_COMPANY-FR201102001574

PATIENT
  Age: 70 Year
  Sex: Female

DRUGS (1)
  1. CYMBALTA [Suspect]
     Dosage: UNK, UNK
     Route: 048
     Dates: start: 20101215

REACTIONS (7)
  - INTERNATIONAL NORMALISED RATIO INCREASED [None]
  - RENAL COLIC [None]
  - GENITAL HAEMORRHAGE [None]
  - HAEMATOMA [None]
  - HAEMATURIA [None]
  - GASTROINTESTINAL HAEMORRHAGE [None]
  - EPISTAXIS [None]
